FAERS Safety Report 5577125-0 (Version None)
Quarter: 2007Q4

REPORT INFORMATION
  Report Type: 
  Country: None (occurrence: None)
  Receive Date: 20071228
  Receipt Date: 20071218
  Transmission Date: 20080405
  Serious: Yes (Hospitalization)
  Sender: FDA-Public Use
  Company Number: US-PFIZER INC-2006082802

PATIENT
  Age: 80 Year
  Sex: Female
  Weight: 69.1 kg

DRUGS (11)
  1. EXEMESTANE [Suspect]
     Indication: BREAST CANCER
     Route: 048
  2. LEXAPRO [Concomitant]
     Route: 065
  3. SINEMET [Concomitant]
     Dosage: TEXT:10/100-FREQ:THREE TIMES DAILY
     Route: 065
  4. PRILOSEC [Concomitant]
     Route: 065
  5. LISINOPRIL [Concomitant]
     Route: 065
  6. GLYBURIDE [Concomitant]
     Dosage: TEXT:TWICE DAILY-FREQ:UNKNOWN
     Route: 065
  7. ZOCOR [Concomitant]
     Route: 065
  8. AGGRENOX [Concomitant]
     Dosage: TEXT:UNKNOWN-FREQ:TWICE DAILY
     Route: 065
  9. BABYPRIN [Concomitant]
     Route: 065
  10. DARVOCET [Concomitant]
     Route: 065
  11. VALIUM [Concomitant]
     Route: 065

REACTIONS (1)
  - FRACTURE [None]
